FAERS Safety Report 9557693 (Version 1)
Quarter: 2013Q3

REPORT INFORMATION
  Report Type: Spontaneous
  Country: US (occurrence: US)
  Receive Date: 20130926
  Receipt Date: 20130926
  Transmission Date: 20140515
  Serious: No
  Sender: FDA-Public Use
  Company Number: US-009507513-1309USA002497

PATIENT
  Age: 16 Year
  Sex: Female

DRUGS (2)
  1. NUVARING [Suspect]
     Indication: CONTRACEPTION
     Dosage: 1 RING FOR 3 WEEKS
     Route: 067
     Dates: start: 20130904, end: 201309
  2. NUVARING [Suspect]
     Dosage: 1 RING FOR 3 WEEKS
     Route: 067
     Dates: start: 201308, end: 20130904

REACTIONS (1)
  - Inappropriate schedule of drug administration [Unknown]
